FAERS Safety Report 21044749 (Version 1)
Quarter: 2022Q3

REPORT INFORMATION
  Report Type: Spontaneous
  Country: CN (occurrence: CN)
  Receive Date: 20220705
  Receipt Date: 20220705
  Transmission Date: 20221027
  Serious: Yes (Other)
  Sender: FDA-Public Use
  Company Number: CN-PFIZER INC-PV202200014504

PATIENT
  Age: 52 Year
  Sex: Male
  Weight: 80 kg

DRUGS (2)
  1. CRIZOTINIB [Suspect]
     Active Substance: CRIZOTINIB
     Indication: Neoplasm malignant
     Dosage: 250 MG, 1X/DAY
     Route: 048
     Dates: start: 20220412, end: 20220412
  2. CRIZOTINIB [Suspect]
     Active Substance: CRIZOTINIB
     Indication: Targeted cancer therapy

REACTIONS (4)
  - Intestinal obstruction [Unknown]
  - Constipation [Recovering/Resolving]
  - Abdominal distension [Unknown]
  - Flatulence [Unknown]

NARRATIVE: CASE EVENT DATE: 20220625
